FAERS Safety Report 18240333 (Version 4)
Quarter: 2020Q3

REPORT INFORMATION
  Report Type: Spontaneous
  Country: IT (occurrence: IT)
  Receive Date: 20200908
  Receipt Date: 20200923
  Transmission Date: 20201103
  Serious: Yes (Other)
  Sender: FDA-Public Use
  Company Number: IT-JNJFOC-20200903017

PATIENT
  Age: 10 Year
  Sex: Female
  Weight: 23 kg

DRUGS (27)
  1. TRAZODONE [Suspect]
     Active Substance: TRAZODONE HYDROCHLORIDE
     Indication: ANXIETY
     Dosage: 1 MG/KG DAILY
     Route: 065
  2. MELATONIN [Suspect]
     Active Substance: MELATONIN
     Indication: SLEEP DISORDER
     Dosage: .05 MG/KG DAILY
     Route: 065
  3. CHLORPHENAMINE [Suspect]
     Active Substance: CHLORPHENIRAMINE MALEATE
     Indication: PRODUCT USED FOR UNKNOWN INDICATION
     Dosage: 0.2 MG/KG (PER DAY)
     Route: 065
  4. KETAMINE [Concomitant]
     Active Substance: KETAMINE
     Indication: SEDATION
     Dosage: UNK (MAXIMUM DOSE REQUIRED 3.5 MG/KG/DAY)
     Route: 065
  5. ALPRAZOLAM. [Suspect]
     Active Substance: ALPRAZOLAM
     Indication: DEPRESSION
  6. ARIPIPRAZOLE. [Suspect]
     Active Substance: ARIPIPRAZOLE
     Indication: DEPRESSION
  7. DIAZEPAM. [Suspect]
     Active Substance: DIAZEPAM
     Indication: SLEEP DISORDER
     Dosage: 0.1 MILLIGRAM/KILOGRAM, DAILY?ADDITIONAL INFO: ADDITIONAL INFO: ADDITIONAL INFO: OFF LABEL USE
     Route: 065
  8. TRAMADOL. [Suspect]
     Active Substance: TRAMADOL
     Indication: PAIN
     Dosage: 6 MG/KG DAILY
     Route: 065
  9. PARACETAMOL [Suspect]
     Active Substance: ACETAMINOPHEN
     Indication: PAIN
     Route: 065
  10. TRAZODONE [Suspect]
     Active Substance: TRAZODONE HYDROCHLORIDE
     Indication: DEPRESSION
  11. METAMIZOLE [Suspect]
     Active Substance: METAMIZOLE
     Indication: PAIN
     Dosage: 20 MG/KG DAILY
     Route: 065
  12. ALPRAZOLAM. [Suspect]
     Active Substance: ALPRAZOLAM
     Indication: ANXIETY
     Dosage: .01 MG/KG DAILY?OFF LABEL USE
     Route: 065
  13. CHLORPHENAMINE [Suspect]
     Active Substance: CHLORPHENIRAMINE MALEATE
     Indication: PRURITUS
     Dosage: 0.2 MILLIGRAM/KILOGRAM, DAILY
     Route: 065
  14. ARIPIPRAZOLE. [Suspect]
     Active Substance: ARIPIPRAZOLE
     Indication: SLEEP DISORDER
  15. GABAPENTIN. [Suspect]
     Active Substance: GABAPENTIN
     Indication: PAIN
     Dosage: 25 MG/KG DAILY
     Route: 065
  16. GABAPENTIN. [Suspect]
     Active Substance: GABAPENTIN
     Indication: PRODUCT USED FOR UNKNOWN INDICATION
     Dosage: 25 MG/KG, QD
     Route: 065
  17. CETIRIZINE HYDROCHLORIDE. [Suspect]
     Active Substance: CETIRIZINE HYDROCHLORIDE
     Indication: PRURITUS
     Dosage: 1 MG/KG DAILY
     Route: 065
  18. ALPRAZOLAM. [Suspect]
     Active Substance: ALPRAZOLAM
     Indication: SLEEP DISORDER
  19. ARIPIPRAZOLE. [Suspect]
     Active Substance: ARIPIPRAZOLE
     Indication: ANXIETY
     Dosage: .3 MG/KG DAILY
     Route: 065
  20. METAMIZOLE [Suspect]
     Active Substance: METAMIZOLE
     Indication: PRODUCT USED FOR UNKNOWN INDICATION
     Dosage: 20 MG/KG (PER DAY)
     Route: 065
  21. NIAPRAZINE [Suspect]
     Active Substance: NIAPRAZINE
     Indication: SLEEP DISORDER
     Dosage: 1 MG/KG DAILY?ADDITIONAL INFO: ADDITIONAL INFO: ADDITIONAL INFO: OFF LABEL USE
     Route: 065
  22. NIAPRAZINE [Suspect]
     Active Substance: NIAPRAZINE
     Indication: PRODUCT USED FOR UNKNOWN INDICATION
     Dosage: 1 MG/KG, QD
     Route: 065
  23. IBUPROFEN. [Suspect]
     Active Substance: IBUPROFEN
     Indication: PAIN
     Route: 065
  24. TRAMADOL. [Suspect]
     Active Substance: TRAMADOL
     Dosage: 5 MILLIGRAM/KILOGRAM, DAILY
     Route: 065
  25. TRAZODONE [Suspect]
     Active Substance: TRAZODONE HYDROCHLORIDE
     Indication: SLEEP DISORDER
  26. DEXMEDETOMIDINE. [Suspect]
     Active Substance: DEXMEDETOMIDINE
     Indication: SLEEP DISORDER
     Dosage: AT A DOSE OF 3MICROG/KG/DAY (0.7 ML OF THE IV FORMULATION AT THE CONCENTRATION OF 100 MICROG/ML),...
  27. PROPOFOL. [Concomitant]
     Active Substance: PROPOFOL
     Indication: SEDATION
     Dosage: UNK (MAXIMUM DOSE REQUIRED 5 MG/KG/DAY) 3 TIMES
     Route: 065

REACTIONS (7)
  - Quality of life decreased [Recovering/Resolving]
  - Sleep disorder [Recovering/Resolving]
  - Irritability [Recovering/Resolving]
  - Paradoxical drug reaction [Recovering/Resolving]
  - Fatigue [Recovering/Resolving]
  - Agitation [Recovering/Resolving]
  - Depressed level of consciousness [Recovering/Resolving]
